FAERS Safety Report 21207050 (Version 1)
Quarter: 2022Q3

REPORT INFORMATION
  Report Type: Spontaneous
  Country: US (occurrence: US)
  Receive Date: 20220812
  Receipt Date: 20220812
  Transmission Date: 20221027
  Serious: Yes (Other)
  Sender: FDA-Public Use
  Company Number: US-MYLANLABS-2022M1085093

PATIENT
  Age: 22 Year
  Sex: Male

DRUGS (2)
  1. PERPHENAZINE [Suspect]
     Active Substance: PERPHENAZINE
     Indication: Catatonia
     Dosage: UNK
     Route: 065
  2. QUETIAPINE [Suspect]
     Active Substance: QUETIAPINE
     Indication: Catatonia
     Dosage: UNK
     Route: 065

REACTIONS (3)
  - Muscle rigidity [Unknown]
  - Dyskinesia [Unknown]
  - Off label use [Unknown]
